FAERS Safety Report 14309841 (Version 1)
Quarter: 2017Q4

REPORT INFORMATION
  Report Type: Spontaneous
  Country: US (occurrence: US)
  Receive Date: 20171220
  Receipt Date: 20171220
  Transmission Date: 20180321
  Serious: Yes (Death)
  Sender: FDA-Public Use
  Company Number: US-CELGENEUS-USA-20171206431

PATIENT
  Age: 58 Year
  Sex: Male

DRUGS (2)
  1. ABRAXANE [Suspect]
     Active Substance: PACLITAXEL
     Indication: PANCREATIC CARCINOMA
     Dosage: 300 MILLIGRAM
     Route: 041
     Dates: start: 201709
  2. ABRAXANE [Suspect]
     Active Substance: PACLITAXEL
     Dosage: 280 MILLIGRAM
     Route: 041
     Dates: start: 2017, end: 201711

REACTIONS (1)
  - Death [Fatal]

NARRATIVE: CASE EVENT DATE: 201711
